FAERS Safety Report 7378064-5 (Version None)
Quarter: 2011Q1

REPORT INFORMATION
  Report Type: 
  Country: None (occurrence: None)
  Receive Date: 20110328
  Receipt Date: 20110323
  Transmission Date: 20110831
  Serious: No
  Sender: FDA-Public Use
  Company Number: US-PFIZER INC-2011065439

PATIENT
  Age: 32 Year
  Sex: Female

DRUGS (1)
  1. ALDACTONE [Suspect]
     Dosage: 12 MG, 1X/DAY
     Route: 048
     Dates: start: 20110222, end: 20110101

REACTIONS (2)
  - DEPRESSION [None]
  - DEPRESSED MOOD [None]
